FAERS Safety Report 5418956-7 (Version None)
Quarter: 2007Q3

REPORT INFORMATION
  Report Type: 
  Country: None (occurrence: None)
  Receive Date: 20070817
  Receipt Date: 20070807
  Transmission Date: 20080115
  Serious: Yes (Hospitalization, Other)
  Sender: FDA-Public Use
  Company Number: US-PFIZER INC-2007065764

PATIENT
  Sex: Male
  Weight: 101.36 kg

DRUGS (8)
  1. LIPITOR [Suspect]
     Indication: BLOOD CHOLESTEROL INCREASED
  2. BACTROBAN [Concomitant]
  3. NAFTIN [Concomitant]
  4. ANTIFUNGALS FOR TOPICAL USE [Concomitant]
  5. ERYTHROMYCIN [Concomitant]
  6. FISH OIL [Concomitant]
  7. ASPIRIN [Concomitant]
  8. INDOMETHACIN [Concomitant]

REACTIONS (10)
  - ARRHYTHMIA [None]
  - DEHYDRATION [None]
  - DIZZINESS [None]
  - FAECES DISCOLOURED [None]
  - FALL [None]
  - GASTROINTESTINAL DISORDER [None]
  - LOSS OF CONSCIOUSNESS [None]
  - MUSCLE TIGHTNESS [None]
  - PALPITATIONS [None]
  - POLYP COLORECTAL [None]
